FAERS Safety Report 5868800-9 (Version None)
Quarter: 2008Q3

REPORT INFORMATION
  Report Type: 
  Country: None (occurrence: None)
  Receive Date: 20080903
  Receipt Date: 20080901
  Transmission Date: 20090109
  Serious: Yes (Death)
  Sender: FDA-Public Use
  Company Number: US-ASTRAZENECA-2008UW17783

PATIENT
  Sex: Female

DRUGS (1)
  1. FOSCAVIR [Suspect]
     Route: 042

REACTIONS (1)
  - DEATH [None]
